FAERS Safety Report 10646680 (Version 4)
Quarter: 2015Q1

REPORT INFORMATION
  Report Type: Spontaneous
  Country: US (occurrence: US)
  Receive Date: 20141211
  Receipt Date: 20150206
  Transmission Date: 20150720
  Serious: No
  Sender: FDA-Public Use
  Company Number: US-PFIZER INC-2014332638

PATIENT
  Age: 81 Year
  Sex: Female
  Weight: 77 kg

DRUGS (5)
  1. ADVIL PM [Suspect]
     Active Substance: DIPHENHYDRAMINE CITRATE\IBUPROFEN
     Indication: INSOMNIA
     Dosage: 2 TABLETS ONCE A DAY (EACH NIGHT AFTER DINNER)
     Route: 048
     Dates: start: 201411, end: 20141210
  2. ADVIL PM [Suspect]
     Active Substance: DIPHENHYDRAMINE CITRATE\IBUPROFEN
     Indication: PAIN
  3. SYNTHROID [Concomitant]
     Active Substance: LEVOTHYROXINE SODIUM
     Dosage: 112 MCG , DAILY
     Route: 048
  4. BENAZEPRIL [Concomitant]
     Active Substance: BENAZEPRIL\BENAZEPRIL HYDROCHLORIDE
     Indication: BLOOD PRESSURE ABNORMAL
     Dosage: UNK, DAILY
  5. AMLODIPINE [Concomitant]
     Active Substance: AMLODIPINE BESYLATE
     Indication: BLOOD PRESSURE ABNORMAL
     Dosage: 5 MG, DAILY
     Route: 048

REACTIONS (2)
  - Pollakiuria [Recovered/Resolved]
  - Drug effect incomplete [Recovered/Resolved]

NARRATIVE: CASE EVENT DATE: 2014
